FAERS Safety Report 10567201 (Version 2)
Quarter: 2014Q4

REPORT INFORMATION
  Report Type: Spontaneous
  Country: JP (occurrence: JP)
  Receive Date: 20141105
  Receipt Date: 20141121
  Transmission Date: 20150529
  Serious: Yes (Hospitalization)
  Sender: FDA-Public Use
  Company Number: JP-BRISTOL-MYERS SQUIBB COMPANY-21560883

PATIENT
  Age: 67 Year
  Sex: Male
  Weight: 59.4 kg

DRUGS (10)
  1. EMEND [Concomitant]
     Active Substance: APREPITANT
     Indication: PREMEDICATION
  2. CISPLATIN. [Suspect]
     Active Substance: CISPLATIN
     Indication: HYPOPHARYNGEAL CANCER
     Route: 041
     Dates: start: 20140521, end: 20141007
  3. ERBITUX [Suspect]
     Active Substance: CETUXIMAB
     Indication: HYPOPHARYNGEAL CANCER
     Dosage: THEN 250 MG/M2-ONG
     Route: 041
     Dates: start: 20140521
  4. CHLOR-TRIMETON [Concomitant]
     Active Substance: CHLORPHENIRAMINE MALEATE
     Indication: PREMEDICATION
  5. DECADRON [Concomitant]
     Active Substance: DEXAMETHASONE
     Indication: PREMEDICATION
  6. FLUOROURACIL. [Suspect]
     Active Substance: FLUOROURACIL
     Indication: HYPOPHARYNGEAL CANCER
     Route: 041
     Dates: start: 20140521, end: 20141007
  7. GRANISETRON [Concomitant]
     Active Substance: GRANISETRON
     Indication: PREMEDICATION
  8. MANNITOL. [Concomitant]
     Active Substance: MANNITOL
     Indication: PREMEDICATION
  9. SOLDEM 3A [Concomitant]
     Active Substance: CARBOHYDRATES\POTASSIUM CHLORIDE\SODIUM CHLORIDE\SODIUM LACTATE
     Indication: PREMEDICATION
  10. LACTEC [Concomitant]
     Active Substance: CALCIUM CHLORIDE ANHYDROUS\POTASSIUM CHLORIDE\SODIUM CHLORIDE\SODIUM LACTATE
     Indication: PREMEDICATION

REACTIONS (1)
  - Renal infarct [Recovering/Resolving]

NARRATIVE: CASE EVENT DATE: 20141013
